FAERS Safety Report 18452009 (Version 1)
Quarter: 2020Q4

REPORT INFORMATION
  Report Type: Spontaneous
  Country: FR (occurrence: FR)
  Receive Date: 20201102
  Receipt Date: 20201102
  Transmission Date: 20210114
  Serious: Yes (Hospitalization)
  Sender: FDA-Public Use
  Company Number: FR-SA-2020SA304252

PATIENT

DRUGS (15)
  1. MESTINON [Concomitant]
     Active Substance: PYRIDOSTIGMINE BROMIDE
     Route: 065
  2. PERINDOPRIL [Concomitant]
     Active Substance: PERINDOPRIL
     Route: 065
  3. INDAPAMIDE. [Concomitant]
     Active Substance: INDAPAMIDE
     Route: 065
  4. IMETH [METHOTREXATE] [Concomitant]
     Active Substance: METHOTREXATE
     Route: 065
  5. PREDNISONE. [Concomitant]
     Active Substance: PREDNISONE
     Route: 065
  6. LAROXYL [Concomitant]
     Active Substance: AMITRIPTYLINE HYDROCHLORIDE
     Route: 065
  7. ZOPICLONE [Suspect]
     Active Substance: ZOPICLONE
     Indication: SUICIDE ATTEMPT
     Dosage: 105 MG, TOTAL
     Route: 048
     Dates: start: 20200229, end: 20200229
  8. IZALGI [Suspect]
     Active Substance: ACETAMINOPHEN\OPIUM
     Indication: SUICIDE ATTEMPT
     Dosage: 5 DF, TOTAL
     Route: 048
     Dates: start: 20200229, end: 20200229
  9. PRAZEPAM [Suspect]
     Active Substance: PRAZEPAM
     Indication: SUICIDE ATTEMPT
     Dosage: 440 MG, TOTAL
     Route: 048
     Dates: start: 20200229, end: 20200229
  10. SPECIAFOLDINE [Concomitant]
     Active Substance: FOLIC ACID
     Route: 065
  11. DOLIPRANE [Suspect]
     Active Substance: ACETAMINOPHEN
     Indication: SUICIDE ATTEMPT
     Dosage: 7.5 G, TOTAL
     Route: 048
     Dates: start: 20200229, end: 20200229
  12. ROSUVASTATINE [ROSUVASTATIN] [Concomitant]
     Active Substance: ROSUVASTATIN
     Route: 065
  13. CELIPROLOL [Suspect]
     Active Substance: CELIPROLOL
     Indication: SUICIDE ATTEMPT
     Dosage: 25.2 G, TOTAL
     Route: 048
     Dates: start: 20200229, end: 20200229
  14. PLAVIX [Suspect]
     Active Substance: CLOPIDOGREL BISULFATE
     Indication: SUICIDE ATTEMPT
     Dosage: 750 MG, TOTAL
     Route: 048
     Dates: start: 20200229, end: 20200229
  15. MORPHINE SULFATE. [Suspect]
     Active Substance: MORPHINE SULFATE
     Indication: SUICIDE ATTEMPT
     Dosage: 250 MG, TOTAL
     Route: 048
     Dates: start: 20200229, end: 20200229

REACTIONS (4)
  - Somnolence [Recovered/Resolved]
  - Toxicity to various agents [Recovered/Resolved]
  - Bradypnoea [Recovered/Resolved]
  - Intentional overdose [Unknown]

NARRATIVE: CASE EVENT DATE: 20200229
